FAERS Safety Report 5540802-1 (Version None)
Quarter: 2007Q4

REPORT INFORMATION
  Report Type: 
  Country: None (occurrence: None)
  Receive Date: 20071129
  Receipt Date: 20070822
  Transmission Date: 20080405
  Serious: Yes (Other)
  Sender: FDA-Public Use
  Company Number: US200708001858

PATIENT
  Age: 40 Year
  Sex: Female

DRUGS (1)
  1. ZYPREXA [Suspect]
     Indication: BIPOLAR DISORDER
     Dosage: 20 MG, EACH EVENING, ORAL
     Route: 048
     Dates: start: 20050809, end: 20051024

REACTIONS (3)
  - BLOOD GLUCOSE INCREASED [None]
  - POLYDIPSIA [None]
  - POLYURIA [None]
